FAERS Safety Report 8515217-4 (Version None)
Quarter: 2012Q3

REPORT INFORMATION
  Report Type: 
  Country: None (occurrence: None)
  Receive Date: 20120717
  Receipt Date: 20120706
  Transmission Date: 20120928
  Serious: Yes (Disabling)
  Sender: FDA-Public Use
  Company Number: GB-BRISTOL-MYERS SQUIBB COMPANY-16746943

PATIENT
  Age: 78 Year
  Sex: Female
  Weight: 66 kg

DRUGS (5)
  1. ACETAMINOPHEN [Concomitant]
     Dates: start: 20120321, end: 20120413
  2. PRAVASTATIN SODIUM [Suspect]
     Dosage: ALSO TAKEN AS CONMED
     Dates: start: 20120529, end: 20120626
  3. SIMVASTATIN [Concomitant]
     Dates: start: 20120321, end: 20120418
  4. IBUPROFEN [Concomitant]
     Dates: start: 20120321, end: 20120418
  5. BENDROFLUMETHIAZIDE [Concomitant]
     Dosage: INTR ON 18APR12 RESUMED FROM 1MAY12
     Dates: start: 20120321

REACTIONS (1)
  - TENDON RUPTURE [None]
